FAERS Safety Report 15782787 (Version 1)
Quarter: 2019Q1

REPORT INFORMATION
  Report Type: Spontaneous
  Country: US (occurrence: US)
  Receive Date: 20190102
  Receipt Date: 20190102
  Transmission Date: 20190417
  Serious: Yes (Other)
  Sender: FDA-Public Use
  Company Number: US-PFIZER INC-2018537188

PATIENT
  Age: 58 Year
  Sex: Female

DRUGS (2)
  1. GABAPENTIN. [Suspect]
     Active Substance: GABAPENTIN
     Indication: FIBROMYALGIA
     Dosage: 100 MG, 3X/DAY
     Route: 048
     Dates: start: 2017
  2. GABAPENTIN. [Suspect]
     Active Substance: GABAPENTIN
     Indication: NERVE COMPRESSION

REACTIONS (8)
  - Bronchitis viral [Unknown]
  - Insomnia [Unknown]
  - Cough [Not Recovered/Not Resolved]
  - Nerve compression [Unknown]
  - Euphoric mood [Unknown]
  - Product use in unapproved indication [Unknown]
  - Carpal tunnel syndrome [Unknown]
  - Dizziness [Unknown]

NARRATIVE: CASE EVENT DATE: 2017
